FAERS Safety Report 15969557 (Version 1)
Quarter: 2019Q1

REPORT INFORMATION
  Report Type: Spontaneous
  Country: US (occurrence: US)
  Receive Date: 20190215
  Receipt Date: 20190215
  Transmission Date: 20190418
  Serious: No
  Sender: FDA-Public Use
  Company Number: US-ACTELION-A-US2019-185678

PATIENT
  Age: 56 Year
  Sex: Female
  Weight: 65.76 kg

DRUGS (1)
  1. UPTRAVI [Suspect]
     Active Substance: SELEXIPAG
     Indication: PULMONARY ARTERIAL HYPERTENSION
     Dosage: 200 MCG, BID
     Route: 048

REACTIONS (14)
  - Nausea [Unknown]
  - Arthralgia [Unknown]
  - Tension [Unknown]
  - Restless legs syndrome [Unknown]
  - Dizziness [Unknown]
  - Paraesthesia [Unknown]
  - Constipation [Recovering/Resolving]
  - Dyspnoea [Unknown]
  - Abdominal pain upper [Unknown]
  - Headache [Unknown]
  - Dysuria [Recovering/Resolving]
  - Myalgia [Unknown]
  - Pain in extremity [Unknown]
  - Angina pectoris [Unknown]

NARRATIVE: CASE EVENT DATE: 201901
